FAERS Safety Report 7822008-6 (Version None)
Quarter: 2011Q4

REPORT INFORMATION
  Report Type: 
  Country: None (occurrence: None)
  Receive Date: 20111018
  Receipt Date: 20111005
  Transmission Date: 20120403
  Serious: Yes (Disabling, Other)
  Sender: FDA-Public Use
  Company Number: PHHY2011FR23978

PATIENT
  Sex: Male
  Weight: 70 kg

DRUGS (14)
  1. CERTICAN [Suspect]
     Indication: HEART TRANSPLANT
     Dosage: 0.75 MG, BID
     Dates: start: 20090601, end: 20110117
  2. PRAVASTATIN [Concomitant]
     Dosage: UNK UKN, UNK
     Route: 048
  3. LASIX [Concomitant]
     Dosage: 40 MG, QD
  4. NEXIUM [Concomitant]
     Dosage: UNK UKN, UNK
     Route: 048
  5. HYPERIUM [Concomitant]
     Dosage: 1 MG, UNK
     Route: 048
  6. CALCIUM CARBONATE [Concomitant]
     Dosage: UNK UKN, UNK
     Route: 048
  7. VALPROIC ACID [Concomitant]
     Dosage: UNK UKN, UNK
  8. IRINOTECAN HCL [Concomitant]
     Dosage: UNK UKN, UNK
     Route: 042
     Dates: start: 20090501, end: 20090801
  9. ASPIRIN [Concomitant]
     Dosage: 160 MG, QD
     Route: 048
  10. MYCOPHENOLATE MOFETIL (CELLCEPT) [Suspect]
     Indication: HEART TRANSPLANT
     Dosage: 750 MG, BID
     Route: 048
     Dates: end: 20110117
  11. LEUCOVORIN CALCIUM [Concomitant]
     Dosage: UNK UKN, UNK
     Route: 042
     Dates: start: 20090601, end: 20090801
  12. NEORAL [Suspect]
     Indication: HEART TRANSPLANT
     Dosage: 30 MG, BID
  13. PRAZEPAM [Concomitant]
     Dosage: UNK UKN, UNK
     Route: 048
  14. FLUOROURACIL [Concomitant]
     Dosage: UNK UKN, UNK
     Route: 042
     Dates: start: 20090501, end: 20090801

REACTIONS (5)
  - OEDEMA PERIPHERAL [None]
  - LYMPHOEDEMA [None]
  - CYTOMEGALOVIRUS INFECTION [None]
  - WEIGHT INCREASED [None]
  - LUNG DISORDER [None]
